FAERS Safety Report 9425838 (Version 4)
Quarter: 2014Q2

REPORT INFORMATION
  Report Type: Spontaneous
  Country: US (occurrence: US)
  Receive Date: 20130729
  Receipt Date: 20140530
  Transmission Date: 20141212
  Serious: Yes (Death, Hospitalization)
  Sender: FDA-Public Use
  Company Number: US-B.I. PHARMACEUTICALS,INC./RIDGEFIELD-2013-BI-22216BP

PATIENT
  Sex: Male
  Weight: 109.77 kg

DRUGS (8)
  1. PRADAXA [Suspect]
     Indication: ANTICOAGULANT THERAPY
     Dosage: 300 MG
     Route: 048
     Dates: start: 20110906, end: 20110909
  2. PRADAXA [Suspect]
     Indication: ATRIAL FIBRILLATION
  3. CELEXA [Concomitant]
     Route: 065
  4. GLUCOPHAGE [Concomitant]
     Route: 065
  5. LISINOPRIL [Concomitant]
     Route: 065
     Dates: start: 201107, end: 201110
  6. METOPROLOL ER [Concomitant]
     Route: 065
  7. PERCOCET [Concomitant]
     Dosage: STRENGTH: 5-325 MG
     Route: 065
  8. CITALOPRAM [Concomitant]
     Route: 065
     Dates: start: 201107, end: 201110

REACTIONS (7)
  - Gastrointestinal haemorrhage [Fatal]
  - Duodenal ulcer perforation [Fatal]
  - Renal failure acute [Fatal]
  - Septic shock [Fatal]
  - Haemorrhagic anaemia [Unknown]
  - Haematuria [Recovered/Resolved]
  - Acute respiratory failure [Unknown]
